FAERS Safety Report 24558818 (Version 1)
Quarter: 2024Q4

REPORT INFORMATION
  Report Type: Spontaneous
  Country: US (occurrence: US)
  Receive Date: 20241029
  Receipt Date: 20241029
  Transmission Date: 20250114
  Serious: No
  Sender: Kenvue
  Company Number: US-KENVUE-20241027625

PATIENT
  Sex: Female

DRUGS (1)
  1. PEPCID COMPLETE [Suspect]
     Active Substance: CALCIUM CARBONATE\FAMOTIDINE\MAGNESIUM HYDROXIDE
     Indication: Gastrooesophageal reflux disease
     Dosage: UNK UNK, ONCE A DAY
     Route: 048
     Dates: start: 20241012

REACTIONS (1)
  - Somnambulism [Unknown]

NARRATIVE: CASE EVENT DATE: 20241013
